FAERS Safety Report 8401266-3 (Version None)
Quarter: 2012Q2

REPORT INFORMATION
  Report Type: 
  Country: None (occurrence: None)
  Receive Date: 20120530
  Receipt Date: 20120530
  Transmission Date: 20120825
  Serious: Yes (Other)
  Sender: FDA-Public Use
  Company Number: None

PATIENT
  Sex: Female
  Weight: 74.8435 kg

DRUGS (2)
  1. LATANOPROST [Suspect]
     Indication: GLAUCOMA
     Dosage: 1 GTT QHS EYE TOPICAL
     Route: 061
     Dates: start: 20120101, end: 20120328
  2. LATANOPROST [Suspect]
     Dates: start: 20120101, end: 20120328

REACTIONS (5)
  - BLISTER [None]
  - ORAL MUCOSAL BLISTERING [None]
  - PRURITUS GENERALISED [None]
  - RASH PRURITIC [None]
  - ORAL MUCOSAL EXFOLIATION [None]
